FAERS Safety Report 10959806 (Version 2)
Quarter: 2015Q2

REPORT INFORMATION
  Report Type: Spontaneous
  Country: US (occurrence: US)
  Receive Date: 20150327
  Receipt Date: 20150501
  Transmission Date: 20150821
  Serious: Yes (Other)
  Sender: FDA-Public Use
  Company Number: US-BEH-2015049910

PATIENT
  Age: 60 Year
  Sex: Female
  Weight: 88.5 kg

DRUGS (32)
  1. VITAMIN D2 [Concomitant]
     Active Substance: ERGOCALCIFEROL
  2. SINGULAIR [Concomitant]
     Active Substance: MONTELUKAST SODIUM
  3. XOPENEX [Concomitant]
     Active Substance: LEVALBUTEROL HYDROCHLORIDE
  4. HIZENTRA [Suspect]
     Active Substance: HUMAN IMMUNOGLOBULIN G
     Route: 058
  5. BLACK COHOSH [Concomitant]
     Active Substance: BLACK COHOSH
  6. SKELAXIN [Concomitant]
     Active Substance: METAXALONE
  7. PANTOPRAZOLE [Concomitant]
     Active Substance: PANTOPRAZOLE SODIUM
  8. SYMBICORT [Concomitant]
     Active Substance: BUDESONIDE\FORMOTEROL FUMARATE DIHYDRATE
  9. CLARITIN [Concomitant]
     Active Substance: LORATADINE
  10. NEURONTIN [Concomitant]
     Active Substance: GABAPENTIN
  11. ALBUTEROL. [Concomitant]
     Active Substance: ALBUTEROL
  12. GABAPENTIN. [Concomitant]
     Active Substance: GABAPENTIN
  13. AMOXICILLIN. [Concomitant]
     Active Substance: AMOXICILLIN
  14. PULMICORT TURBUHALER [Concomitant]
     Active Substance: BUDESONIDE
  15. BENAZEPRIL [Concomitant]
     Active Substance: BENAZEPRIL\BENAZEPRIL HYDROCHLORIDE
  16. MULTIVITAMIN [Concomitant]
     Active Substance: VITAMINS
  17. HIZENTRA [Suspect]
     Active Substance: HUMAN IMMUNOGLOBULIN G
     Indication: IMMUNODEFICIENCY COMMON VARIABLE
     Route: 058
  18. STOOL SOFTENER [Concomitant]
     Active Substance: DOCUSATE CALCIUM
  19. VITAMIN B12 [Concomitant]
     Active Substance: CYANOCOBALAMIN
  20. CELEXA [Concomitant]
     Active Substance: CITALOPRAM HYDROBROMIDE
  21. FISH OIL [Concomitant]
     Active Substance: FISH OIL
  22. TYLENOL [Concomitant]
     Active Substance: ACETAMINOPHEN
  23. LYSINE [Concomitant]
     Active Substance: LYSINE
  24. MAGNESIUM [Concomitant]
     Active Substance: MAGNESIUM
  25. FOSAMAX [Concomitant]
     Active Substance: ALENDRONATE SODIUM
  26. RANITIDINE [Concomitant]
     Active Substance: RANITIDINE\RANITIDINE HYDROCHLORIDE
  27. DIPHENHYDRAMINE [Concomitant]
     Active Substance: DIPHENHYDRAMINE
  28. SIMVASTATIN. [Concomitant]
     Active Substance: SIMVASTATIN
  29. OSCAL [Concomitant]
     Active Substance: CALCIUM CARBONATE
  30. HYDROCHLOROTHIAZIDE. [Concomitant]
     Active Substance: HYDROCHLOROTHIAZIDE
  31. FLONASE [Concomitant]
     Active Substance: FLUTICASONE PROPIONATE
  32. ASPIRIN. [Concomitant]
     Active Substance: ASPIRIN

REACTIONS (4)
  - Respiratory tract infection [Recovered/Resolved]
  - Infusion site urticaria [Recovered/Resolved]
  - Drug dose omission [Recovered/Resolved]
  - Infusion site swelling [Recovered/Resolved]

NARRATIVE: CASE EVENT DATE: 201503
